FAERS Safety Report 5866234-4 (Version None)
Quarter: 2008Q3

REPORT INFORMATION
  Report Type: 
  Country: None (occurrence: None)
  Receive Date: 20080829
  Receipt Date: 20080819
  Transmission Date: 20090109
  Serious: Yes (Other)
  Sender: FDA-Public Use
  Company Number: US-PFIZER INC-2008070251

PATIENT
  Sex: Female
  Weight: 81 kg

DRUGS (10)
  1. CHANTIX [Suspect]
     Indication: SMOKING CESSATION THERAPY
     Route: 048
     Dates: start: 20080812, end: 20080815
  2. DOXEPIN HCL [Concomitant]
  3. METFORMIN HCL [Concomitant]
  4. TRAMADOL HCL [Concomitant]
  5. LISINOPRIL [Concomitant]
  6. VYTORIN [Concomitant]
  7. GLIPIZIDE [Concomitant]
  8. OMEPRAZOLE [Concomitant]
  9. TOPROL-XL [Concomitant]
  10. ACTOS [Concomitant]

REACTIONS (2)
  - BLOOD GLUCOSE DECREASED [None]
  - BLOOD GLUCOSE INCREASED [None]
